FAERS Safety Report 8366177-0 (Version None)
Quarter: 2012Q2

REPORT INFORMATION
  Report Type: 
  Country: None (occurrence: None)
  Receive Date: 20120516
  Receipt Date: 20120504
  Transmission Date: 20120825
  Serious: Yes (Hospitalization)
  Sender: FDA-Public Use
  Company Number: DSM-2012-00063

PATIENT
  Age: 71 Year
  Sex: Female

DRUGS (7)
  1. STABLON (TIANEPTINE SODIUM) [Concomitant]
  2. BISOPROLOL FUMARATE [Concomitant]
  3. DALFAGAN (PARACETAMOL) [Concomitant]
  4. AXELER (OLMESARTAN MEDOXOMIL, AMLODIPINE BESILATE) (TABLET) (OLMESARTA [Suspect]
     Indication: HYPERTENSION
     Dosage: 20/5 MG, ORAL
     Route: 048
     Dates: start: 20100127
  5. ZOCOR [Concomitant]
  6. LORAZEPAM [Concomitant]
  7. NEXIUM [Concomitant]

REACTIONS (14)
  - PURPURA [None]
  - ARTHRALGIA [None]
  - PRURITUS [None]
  - DYSCHEZIA [None]
  - DRY MOUTH [None]
  - RASH [None]
  - BLOOD PRESSURE INCREASED [None]
  - DRY EYE [None]
  - XEROPHTHALMIA [None]
  - HEPATOCELLULAR INJURY [None]
  - GAMMA-GLUTAMYLTRANSFERASE INCREASED [None]
  - SJOGREN'S SYNDROME [None]
  - DYSURIA [None]
  - CULTURE URINE POSITIVE [None]
